FAERS Safety Report 21108958 (Version 1)
Quarter: 2022Q3

REPORT INFORMATION
  Report Type: Spontaneous
  Country: MX (occurrence: MX)
  Receive Date: 20220721
  Receipt Date: 20220721
  Transmission Date: 20221027
  Serious: Yes (Other)
  Sender: FDA-Public Use
  Company Number: MX-ORGANON-O2205MEX001558

PATIENT
  Sex: Female

DRUGS (1)
  1. ETONOGESTREL [Suspect]
     Active Substance: ETONOGESTREL
     Dosage: 1 IMPLANT
     Route: 059
     Dates: start: 20210813, end: 20210830

REACTIONS (2)
  - Device related infection [Recovered/Resolved]
  - Implant site haematoma [Recovering/Resolving]

NARRATIVE: CASE EVENT DATE: 20210801
